FAERS Safety Report 24645171 (Version 1)
Quarter: 2024Q4

REPORT INFORMATION
  Report Type: Spontaneous
  Country: US (occurrence: US)
  Receive Date: 20241121
  Receipt Date: 20241121
  Transmission Date: 20250115
  Serious: No
  Sender: ABBVIE
  Company Number: US-ABBVIE-6002633

PATIENT

DRUGS (1)
  1. CREON [Suspect]
     Active Substance: PANCRELIPASE AMYLASE\PANCRELIPASE LIPASE\PANCRELIPASE PROTEASE
     Indication: Pancreatic failure
     Dosage: 2 AT THE BEGINNING OF EACH MEAL, 1 AT THE BEGINNING OF EACH SNACK
     Route: 048

REACTIONS (4)
  - Abnormal faeces [Unknown]
  - Flatulence [Unknown]
  - Abdominal distension [Unknown]
  - Product dose omission in error [Unknown]
